FAERS Safety Report 8555277 (Version 5)
Quarter: 2012Q4

REPORT INFORMATION
  Report Type: 
  Country: US (occurrence: US)
  Receive Date: 20120510
  Receipt Date: 20121108
  Transmission Date: 20130627
  Serious: Yes (Other)
  Sender: FDA-Public Use
  Company Number: US-PFIZER INC-2012111747

PATIENT
  Age: 60 Year
  Sex: Female

DRUGS (2)
  1. LYRICA [Suspect]
     Indication: FIBROMYALGIA
     Dosage: 75 mg, 2x/day
     Route: 048
     Dates: end: 20110517
  2. HYDROCODONE [Concomitant]
     Indication: PAIN
     Dosage: 7.5/ 325, 1 every 4-6 as needed
     Route: 048

REACTIONS (4)
  - Neoplasm malignant [Unknown]
  - Back disorder [Unknown]
  - Pseudarthrosis [Unknown]
  - Neck pain [Unknown]
